FAERS Safety Report 16920173 (Version 1)
Quarter: 2019Q4

REPORT INFORMATION
  Report Type: Spontaneous
  Country: US (occurrence: US)
  Receive Date: 20191015
  Receipt Date: 20191015
  Transmission Date: 20200122
  Serious: Yes (Hospitalization)
  Sender: FDA-Public Use
  Company Number: US-LUNDBECK-DKLU3005950

PATIENT
  Sex: Male
  Weight: 22 kg

DRUGS (3)
  1. SABRIL [Suspect]
     Active Substance: VIGABATRIN
     Dosage: OVERDOSE: 2500 MG IN AM
     Route: 065
  2. SABRIL [Suspect]
     Active Substance: VIGABATRIN
     Indication: PRODUCT USED FOR UNKNOWN INDICATION
     Route: 065
  3. SABRIL [Suspect]
     Active Substance: VIGABATRIN
     Dosage: OVERDOSE: 3000 MG AT HS
     Route: 065

REACTIONS (2)
  - Respiratory distress [Unknown]
  - Prescribed overdose [Unknown]
